FAERS Safety Report 16319709 (Version 1)
Quarter: 2019Q2

REPORT INFORMATION
  Report Type: Spontaneous
  Country: US (occurrence: US)
  Receive Date: 20190516
  Receipt Date: 20190516
  Transmission Date: 20190711
  Serious: No
  Sender: FDA-Public Use
  Company Number: US-GALDERMA-US18035113

PATIENT
  Age: 15 Year
  Sex: Male

DRUGS (4)
  1. PROACTIV MD ADAPALENE ACNE TREATMENT [Suspect]
     Active Substance: ADAPALENE
     Indication: ACNE
     Dosage: 0.1%
     Route: 061
     Dates: start: 20180428, end: 20180627
  2. PROACTIV MD DAILY OIL CONTROL SPF 30 [Suspect]
     Active Substance: AVOBENZONE\OCTISALATE\OCTOCRYLENE
     Indication: ACNE
     Route: 061
     Dates: start: 20180428, end: 20180627
  3. VITAMINS [Concomitant]
     Active Substance: VITAMINS
  4. PROACTIV MD DEEP CLEANSING FACE WASH [Concomitant]
     Active Substance: COSMETICS
     Indication: ACNE
     Route: 061
     Dates: start: 20180428, end: 20180627

REACTIONS (5)
  - Skin irritation [Not Recovered/Not Resolved]
  - Acne [Not Recovered/Not Resolved]
  - Blister [Not Recovered/Not Resolved]
  - Acne cystic [Not Recovered/Not Resolved]
  - Erythema [Not Recovered/Not Resolved]

NARRATIVE: CASE EVENT DATE: 20180520
